FAERS Safety Report 13737126 (Version 1)
Quarter: 2017Q3

REPORT INFORMATION
  Report Type: Spontaneous
  Country: US (occurrence: US)
  Receive Date: 20170710
  Receipt Date: 20170710
  Transmission Date: 20171127
  Serious: Yes (Death)
  Sender: FDA-Public Use
  Company Number: US-TEIKOKU PHARMA USA-TPU2017-00386

PATIENT
  Sex: Female

DRUGS (2)
  1. SYNTHROID [Concomitant]
     Active Substance: LEVOTHYROXINE SODIUM
     Indication: THYROID DISORDER
  2. LIDOCAINE PATCH [Suspect]
     Active Substance: LIDOCAINE
     Indication: NEURALGIA
     Dosage: 1/2 OF A PATCH SOMETIMES USED 2 ON HER KNEES, HIP, BACK AND PROBABLY HER NECK

REACTIONS (4)
  - Body height decreased [Not Recovered/Not Resolved]
  - Fall [None]
  - Cerebrovascular accident [None]
  - Loss of consciousness [Unknown]

NARRATIVE: CASE EVENT DATE: 20170506
